FAERS Safety Report 15640405 (Version 1)
Quarter: 2018Q4

REPORT INFORMATION
  Report Type: Report from Study
  Country: AR (occurrence: AR)
  Receive Date: 20181120
  Receipt Date: 20181120
  Transmission Date: 20190205
  Serious: Yes (Death, Hospitalization)
  Sender: FDA-Public Use
  Company Number: PHHY2018AR159882

PATIENT
  Sex: Female

DRUGS (2)
  1. TRILEPTAL [Suspect]
     Active Substance: OXCARBAZEPINE
     Indication: DEMENTIA ALZHEIMER^S TYPE
     Dosage: (600, UNITS NOT PROVIDED)
     Route: 065
  2. TRILEPTAL [Suspect]
     Active Substance: OXCARBAZEPINE
     Indication: SEIZURE

REACTIONS (4)
  - General physical health deterioration [Fatal]
  - Anxiety [Unknown]
  - Hip fracture [Unknown]
  - Product use in unapproved indication [Unknown]
